FAERS Safety Report 23797904 (Version 1)
Quarter: 2024Q2

REPORT INFORMATION
  Report Type: Spontaneous
  Country: US (occurrence: None)
  Receive Date: 20240426
  Receipt Date: 20240426
  Transmission Date: 20240715
  Serious: Yes (Other)
  Sender: FDA-Public Use
  Company Number: None

PATIENT
  Age: 79 Year
  Sex: Male

DRUGS (1)
  1. RINVOQ [Suspect]
     Active Substance: UPADACITINIB
     Indication: Colitis ulcerative
     Dosage: 45 MG DAILY ORAL?
     Route: 048
     Dates: start: 20240111

REACTIONS (3)
  - Arthralgia [None]
  - Myalgia [None]
  - Therapy change [None]

NARRATIVE: CASE EVENT DATE: 20240311
